FAERS Safety Report 5526928-7 (Version None)
Quarter: 2007Q4

REPORT INFORMATION
  Report Type: 
  Country: None (occurrence: None)
  Receive Date: 20071127
  Receipt Date: 20071116
  Transmission Date: 20080405
  Serious: Yes (Hospitalization)
  Sender: FDA-Public Use
  Company Number: DE-ROCHE-533200

PATIENT
  Age: 65 Year
  Sex: Male

DRUGS (17)
  1. TIKLYD [Suspect]
     Route: 048
     Dates: start: 20070101, end: 20070101
  2. PLAVIX [Suspect]
     Route: 048
     Dates: start: 20071001
  3. PLAVIX [Suspect]
     Route: 048
     Dates: start: 20070801
  4. PLAVIX [Suspect]
     Dosage: LOADING DOSE
     Route: 048
     Dates: start: 20070101, end: 20070101
  5. PLAVIX [Suspect]
     Route: 048
     Dates: start: 20070101
  6. PLAVIX [Suspect]
     Dosage: LOADING DOSE
     Route: 048
     Dates: start: 20070101, end: 20070101
  7. NORVASC [Concomitant]
     Route: 048
  8. DIOVAN [Concomitant]
     Route: 048
  9. 1 CONCOMITANT DRUG [Concomitant]
     Dosage: DRUG: RASILEZ
     Route: 048
  10. INSPRA [Concomitant]
     Route: 048
  11. TORSEMIDE [Concomitant]
     Route: 048
  12. PROPAFENON [Concomitant]
     Route: 048
  13. SIMVASTATIN [Concomitant]
     Route: 048
  14. METFORMIN HCL [Concomitant]
     Route: 048
  15. ESOMEPRAZOLE [Concomitant]
     Route: 048
  16. ASPIRIN [Concomitant]
     Indication: MYOCARDIAL INFARCTION
     Dosage: OTHER INDICATION REPORTED AS TWICE, PTCA
     Route: 048
     Dates: start: 20070801
  17. BISOPROLOL FUMARATE [Concomitant]
     Dosage: GENERIC NAME REPORTED AS BISOPROLOL FUMARATE
     Route: 048

REACTIONS (4)
  - ANGINA PECTORIS [None]
  - DRUG INEFFECTIVE [None]
  - HYPOKALAEMIA [None]
  - TACHYARRHYTHMIA [None]
